FAERS Safety Report 4719002-0 (Version None)
Quarter: 2005Q3

REPORT INFORMATION
  Report Type: 
  Country: None (occurrence: None)
  Receive Date: 20050720
  Receipt Date: 20050707
  Transmission Date: 20060218
  Serious: Yes (Hospitalization, Other)
  Sender: FDA-Public Use
  Company Number: 2005098586

PATIENT
  Age: 67 Year
  Sex: Male

DRUGS (4)
  1. PREDNISONE [Suspect]
     Indication: ILL-DEFINED DISORDER
     Dosage: (5 MG, UNKNOWN), ORAL
     Route: 048
  2. ASPIRIN [Suspect]
     Indication: ILL-DEFINED DISORDER
     Dosage: (75 MG, UNKNOWN), ORAL
     Route: 048
     Dates: start: 20050426
  3. SELOKEN ZOC (METOPROLOL SUCCINATE) [Concomitant]
  4. ALVEDON (PARACETAMOL) [Concomitant]

REACTIONS (3)
  - ABDOMINAL PAIN UPPER [None]
  - ANGIOPATHY [None]
  - GASTRIC ULCER HAEMORRHAGE [None]
